FAERS Safety Report 4636224-8 (Version None)
Quarter: 2005Q2

REPORT INFORMATION
  Report Type: 
  Country: None (occurrence: None)
  Receive Date: 20050415
  Receipt Date: 20050408
  Transmission Date: 20051028
  Serious: Yes (Other)
  Sender: FDA-Public Use
  Company Number: PHBS2005BR05161

PATIENT
  Age: 33 Year
  Sex: Female

DRUGS (3)
  1. TEGRETOL [Suspect]
     Indication: CONVULSION
     Dosage: 400 MG, QID
     Route: 048
  2. TEGRETOL [Suspect]
     Dosage: 400 MG, TID
     Route: 048
  3. TEGRETOL [Suspect]
     Dosage: 400 MG, QID
     Route: 048

REACTIONS (7)
  - AMNIOTIC FLUID VOLUME DECREASED [None]
  - CAESAREAN SECTION [None]
  - CONVULSION [None]
  - DRUG EXPOSURE DURING PREGNANCY [None]
  - DRUG EXPOSURE VIA BREAST MILK [None]
  - PREGNANCY [None]
  - PREMATURE LABOUR [None]
